FAERS Safety Report 20696856 (Version 1)
Quarter: 2022Q2

REPORT INFORMATION
  Report Type: Spontaneous
  Country: US (occurrence: US)
  Receive Date: 20220411
  Receipt Date: 20220411
  Transmission Date: 20220721
  Serious: No
  Sender: FDA-Public Use
  Company Number: US-Osmotica_Pharmaceutical_US_LLC-POI0573202000314

PATIENT
  Age: 70 Year
  Sex: Male

DRUGS (6)
  1. OSMOLEX ER [Suspect]
     Active Substance: AMANTADINE
     Indication: Parkinson^s disease
     Dates: start: 20200123, end: 20200129
  2. OSMOLEX ER [Suspect]
     Active Substance: AMANTADINE
     Dates: start: 20200130, end: 20200417
  3. OSMOLEX ER [Suspect]
     Active Substance: AMANTADINE
     Dates: start: 20200418
  4. CARBIDOPA\LEVODOPA [Concomitant]
     Active Substance: CARBIDOPA\LEVODOPA
     Indication: Parkinson^s disease
     Dosage: 25-100 MG
     Dates: start: 202104
  5. LEVOTHYROXINE [Concomitant]
     Active Substance: LEVOTHYROXINE
     Indication: Product used for unknown indication
  6. EZETIMIBE [Concomitant]
     Active Substance: EZETIMIBE
     Indication: Product used for unknown indication
     Dates: start: 202104

REACTIONS (4)
  - Pain in extremity [Recovered/Resolved]
  - Oedema [Not Recovered/Not Resolved]
  - Oedema peripheral [Unknown]
  - Skin exfoliation [Not Recovered/Not Resolved]

NARRATIVE: CASE EVENT DATE: 20200201
